FAERS Safety Report 18217569 (Version 1)
Quarter: 2020Q3

REPORT INFORMATION
  Report Type: Spontaneous
  Country: US (occurrence: US)
  Receive Date: 20200831
  Receipt Date: 20200831
  Transmission Date: 20201103
  Serious: Yes (Hospitalization)
  Sender: FDA-Public Use
  Company Number: None

PATIENT
  Age: 63 Year
  Sex: Male
  Weight: 108 kg

DRUGS (1)
  1. ALLOPURINOL (ALLOPURINOL 100MG TAB) [Suspect]
     Active Substance: ALLOPURINOL
     Indication: GOUT
     Route: 048
     Dates: end: 20191001

REACTIONS (2)
  - Rash [None]
  - Lip swelling [None]

NARRATIVE: CASE EVENT DATE: 20191001
